FAERS Safety Report 24128259 (Version 1)
Quarter: 2024Q3

REPORT INFORMATION
  Report Type: Spontaneous
  Country: ES (occurrence: ES)
  Receive Date: 20240723
  Receipt Date: 20240723
  Transmission Date: 20241017
  Serious: Yes (Hospitalization, Other)
  Sender: BAXTER
  Company Number: None

PATIENT
  Age: 77 Year
  Sex: Female
  Weight: 45.5 kg

DRUGS (7)
  1. DOXORUBICIN [Suspect]
     Active Substance: DOXORUBICIN
     Indication: B-cell lymphoma
     Dosage: TO 50 MG/M2 (76 MG), 1 X TOTAL, (202A)
     Route: 042
     Dates: start: 20231228, end: 20231228
  2. CYCLOPHOSPHAMIDE [Suspect]
     Active Substance: CYCLOPHOSPHAMIDE
     Indication: B-cell lymphoma
     Dosage: 750 MG/M2 (1134MG) OF THE, 1 X TOTAL, (120A)
     Route: 042
     Dates: start: 20231228, end: 20231228
  3. VINCRISTINE [Suspect]
     Active Substance: VINCRISTINE
     Indication: B-cell lymphoma
     Dosage: 1.4 MG/M2 (2 MG), 1 X TOTAL, (809A)
     Route: 042
     Dates: start: 20231228, end: 20231228
  4. MABTHERA [Concomitant]
     Active Substance: RITUXIMAB
     Indication: B-cell lymphoma
     Dosage: 375 MG/M2 (567 MG), 1 X TOTAL, 1 VIAL OF 50 ML
     Route: 042
     Dates: start: 20240101, end: 20240101
  5. METHOTREXATE [Concomitant]
     Active Substance: METHOTREXATE
     Indication: B-cell lymphoma
     Dosage: 12 G, 1 X TOTAL, 12 MG, (418A)
     Route: 037
     Dates: start: 20231228, end: 20231228
  6. CYTARABINE [Concomitant]
     Active Substance: CYTARABINE
     Indication: B-cell lymphoma
     Dosage: 30 MG OF THE, 1 X TOTAL, (124A)
     Route: 037
     Dates: start: 20231228, end: 20231228
  7. HYDROCORTISONE [Concomitant]
     Active Substance: HYDROCORTISONE\HYDROCORTISONE ACETATE
     Indication: B-cell lymphoma
     Dosage: 15 MG OF THE, 1 X TOTAL, (54A)
     Route: 037
     Dates: start: 20231228, end: 20231228

REACTIONS (1)
  - Inappropriate antidiuretic hormone secretion [Recovered/Resolved]

NARRATIVE: CASE EVENT DATE: 20240111
